FAERS Safety Report 18747621 (Version 1)
Quarter: 2021Q1

REPORT INFORMATION
  Report Type: Report from Study
  Country: US (occurrence: US)
  Receive Date: 20210115
  Receipt Date: 20210115
  Transmission Date: 20210419
  Serious: Yes (Other)
  Sender: FDA-Public Use
  Company Number: US-GLAXOSMITHKLINE-US2020GSK260936

PATIENT
  Sex: Female

DRUGS (2)
  1. HUMIRA [Suspect]
     Active Substance: ADALIMUMAB
     Indication: RHEUMATOID ARTHRITIS
     Dosage: UNK, CITRATE FREE (40 ,1 IN 2 WK)
     Route: 058
     Dates: start: 2015
  2. FLUTICASONE FUROATE + VILANTEROL TRIFENATATE [Suspect]
     Active Substance: FLUTICASONE FUROATE\VILANTEROL TRIFENATATE
     Indication: PRODUCT USED FOR UNKNOWN INDICATION
     Dosage: UNK

REACTIONS (9)
  - Respiratory disorder [Unknown]
  - Urticaria [Not Recovered/Not Resolved]
  - Sinusitis [Unknown]
  - Pleuritic pain [Not Recovered/Not Resolved]
  - Asthma [Unknown]
  - Thyroid disorder [Unknown]
  - Respiratory tract infection [Unknown]
  - Eczema [Recovering/Resolving]
  - Drug hypersensitivity [Unknown]

NARRATIVE: CASE EVENT DATE: 2015
